FAERS Safety Report 4705044-8 (Version None)
Quarter: 2005Q3

REPORT INFORMATION
  Report Type: 
  Country: None (occurrence: None)
  Receive Date: 20050701
  Receipt Date: 20050525
  Transmission Date: 20060218
  Serious: Yes (Hospitalization, Other)
  Sender: FDA-Public Use
  Company Number: PHBS2005ES07521

PATIENT
  Age: 31 Year
  Sex: Male

DRUGS (4)
  1. CLOZAPINE [Suspect]
     Indication: SCHIZOPHRENIA, PARANOID TYPE
     Dosage: 50 MG/D
     Route: 065
  2. CLOZAPINE [Suspect]
     Dosage: 700 MG/D
     Route: 065
  3. CLOZAPINE [Suspect]
     Dosage: 25 MG, Q8H
     Route: 065
  4. CLOZAPINE [Suspect]
     Dosage: 125 MG/D
     Route: 065

REACTIONS (19)
  - ABNORMAL BEHAVIOUR [None]
  - BLOOD CREATINE PHOSPHOKINASE INCREASED [None]
  - CLONUS [None]
  - CONFUSIONAL STATE [None]
  - DELIRIUM [None]
  - DEPRESSION [None]
  - DRUG WITHDRAWAL SYNDROME [None]
  - EATING DISORDER [None]
  - ECHOLALIA [None]
  - FEAR [None]
  - HALLUCINATION, VISUAL [None]
  - HYPERHIDROSIS [None]
  - HYPERREFLEXIA [None]
  - SPEECH DISORDER [None]
  - STUPOR [None]
  - TACHYCARDIA [None]
  - TREMOR [None]
  - UNRESPONSIVE TO VERBAL STIMULI [None]
  - VOMITING [None]
